FAERS Safety Report 7028358-8 (Version None)
Quarter: 2010Q4

REPORT INFORMATION
  Report Type: 
  Country: None (occurrence: None)
  Receive Date: 20101005
  Receipt Date: 20100922
  Transmission Date: 20110411
  Serious: Yes (Other)
  Sender: FDA-Public Use
  Company Number: JP-ROCHE-726772

PATIENT
  Sex: Male
  Weight: 2.7 kg

DRUGS (1)
  1. OSELTAMIVIR [Suspect]
     Indication: INFLUENZA
     Dosage: FORM: ORAL FORMULATION NOT OTHERWISE SPECIFIED
     Route: 064
     Dates: start: 20091030, end: 20091103

REACTIONS (6)
  - ABDOMINAL DISTENSION [None]
  - ACNE INFANTILE [None]
  - AUDIOGRAM ABNORMAL [None]
  - DRUG EXPOSURE DURING PREGNANCY [None]
  - PERIPROCTITIS [None]
  - UMBILICAL HERNIA [None]
